FAERS Safety Report 16415312 (Version 1)
Quarter: 2019Q3

REPORT INFORMATION
  Report Type: Spontaneous
  Country: US (occurrence: US)
  Receive Date: 20190610
  Receipt Date: 20190610
  Transmission Date: 20191004
  Serious: Yes (Other)
  Sender: FDA-Public Use
  Company Number: None

PATIENT
  Sex: Male
  Weight: 85.05 kg

DRUGS (1)
  1. IDELVION [Suspect]
     Active Substance: COAGULATION FACTOR IX RECOMBINANT HUMAN
     Indication: FACTOR IX DEFICIENCY
     Dosage: ?          OTHER FREQUENCY:ONCE WEEKLY;?
     Route: 042
     Dates: start: 20190329, end: 20190419

REACTIONS (3)
  - Headache [None]
  - Serum sickness [None]
  - Influenza like illness [None]
